FAERS Safety Report 7996993-6 (Version None)
Quarter: 2011Q4

REPORT INFORMATION
  Report Type: 
  Country: None (occurrence: None)
  Receive Date: 20111221
  Receipt Date: 20111215
  Transmission Date: 20120403
  Serious: Yes (Hospitalization, Other)
  Sender: FDA-Public Use
  Company Number: PHHY2011US59398

PATIENT
  Sex: Male

DRUGS (7)
  1. DILAUDID [Concomitant]
     Dosage: 4 MG
     Route: 048
  2. HYDREA [Concomitant]
     Dosage: 1000 MG, DAILY
  3. EXJADE [Suspect]
     Indication: IRON OVERLOAD
     Dosage: 2500 MG, DAILY
     Route: 048
     Dates: start: 20060214
  4. METHADONE HCL [Concomitant]
     Dosage: 60 MG, Q8H
     Route: 048
  5. RED BLOOD CELLS [Concomitant]
     Dosage: UNK
  6. FOLIC ACID [Concomitant]
     Dosage: 1 MG, DAILY
  7. LACTULOSE [Concomitant]
     Dosage: UNK
     Route: 048

REACTIONS (7)
  - BACK PAIN [None]
  - ABDOMINAL PAIN UPPER [None]
  - CARDIOMEGALY [None]
  - IRON OVERLOAD [None]
  - SICKLE CELL ANAEMIA WITH CRISIS [None]
  - PAIN IN EXTREMITY [None]
  - CONSTIPATION [None]
